FAERS Safety Report 7560602-0 (Version None)
Quarter: 2011Q2

REPORT INFORMATION
  Report Type: 
  Country: None (occurrence: None)
  Receive Date: 20110621
  Receipt Date: 20100825
  Transmission Date: 20111010
  Serious: No
  Sender: FDA-Public Use
  Company Number: US-ASTRAZENECA-2010SE39996

PATIENT
  Age: 19 Year
  Sex: Male
  Weight: 74.8 kg

DRUGS (2)
  1. ENTOCORT EC [Suspect]
     Indication: CROHN'S DISEASE
     Route: 048
     Dates: start: 20100701
  2. IMURIN [Concomitant]

REACTIONS (2)
  - GASTROINTESTINAL SOUNDS ABNORMAL [None]
  - FEELING ABNORMAL [None]
